FAERS Safety Report 12648914 (Version 1)
Quarter: 2016Q3

REPORT INFORMATION
  Report Type: Report from Study
  Country: GB (occurrence: GB)
  Receive Date: 20160812
  Receipt Date: 20160812
  Transmission Date: 20161109
  Serious: Yes (Hospitalization)
  Sender: FDA-Public Use
  Company Number: GB-JNJFOC-20160602828

PATIENT
  Age: 45 Year
  Sex: Female

DRUGS (1)
  1. STELARA [Suspect]
     Active Substance: USTEKINUMAB
     Indication: PSORIATIC ARTHROPATHY
     Dosage: ON WEEK 4 AS DIRECTED
     Route: 058

REACTIONS (5)
  - Drug ineffective [Unknown]
  - Infection [Unknown]
  - Arthralgia [Unknown]
  - Procedural pain [Unknown]
  - Surgery [Unknown]

NARRATIVE: CASE EVENT DATE: 201605
